FAERS Safety Report 4778890-2 (Version None)
Quarter: 2005Q3

REPORT INFORMATION
  Report Type: 
  Country: None (occurrence: None)
  Receive Date: 20050922
  Receipt Date: 20050914
  Transmission Date: 20060218
  Serious: Yes (Other)
  Sender: FDA-Public Use
  Company Number: 1998-12-1043

PATIENT
  Sex: Female
  Weight: 5.1 kg

DRUGS (2)
  1. REBETOL [Suspect]
     Indication: HEPATITIS C
     Dosage: 1000 MG QD ORAL
     Route: 048
     Dates: start: 19980820
  2. INTRON A [Suspect]
     Indication: HEPATITIS C
     Dosage: 3 MU TIW SUBCUTANEOUS
     Route: 058
     Dates: start: 19980820

REACTIONS (7)
  - CAESAREAN SECTION [None]
  - ENTEROCOCCAL INFECTION [None]
  - NEONATAL DISORDER [None]
  - NEONATAL PNEUMONIA [None]
  - NEONATAL RESPIRATORY DISTRESS SYNDROME [None]
  - PULMONARY HYPERTENSION [None]
  - TRANSMISSION OF DRUG VIA SEMEN [None]
